FAERS Safety Report 19393411 (Version 1)
Quarter: 2021Q2

REPORT INFORMATION
  Report Type: Spontaneous
  Country: US (occurrence: US)
  Receive Date: 20210608
  Receipt Date: 20210608
  Transmission Date: 20210717
  Serious: No
  Sender: FDA-Public Use
  Company Number: None

PATIENT
  Age: 70 Year
  Sex: Female
  Weight: 57.6 kg

DRUGS (2)
  1. IBRANCE [Suspect]
     Active Substance: PALBOCICLIB
     Indication: BREAST CANCER METASTATIC
     Dosage: ?          OTHER FREQUENCY:QD X21D THN OFF 7D;?
     Route: 048
     Dates: start: 20210516, end: 20210521
  2. FASLODEX [Concomitant]
     Active Substance: FULVESTRANT
     Dates: start: 20210511

REACTIONS (3)
  - Nausea [None]
  - Therapy cessation [None]
  - Myelosuppression [None]

NARRATIVE: CASE EVENT DATE: 20210601
